FAERS Safety Report 6637641-7 (Version None)
Quarter: 2010Q1

REPORT INFORMATION
  Report Type: 
  Country: None (occurrence: None)
  Receive Date: 20100317
  Receipt Date: 20100305
  Transmission Date: 20100710
  Serious: Yes (Other)
  Sender: FDA-Public Use
  Company Number: PT-WYE-H14024710

PATIENT
  Age: 68 Year
  Sex: Male
  Weight: 78 kg

DRUGS (3)
  1. PANTOC [Suspect]
     Indication: GASTROOESOPHAGEAL REFLUX DISEASE
     Route: 048
     Dates: start: 20100210, end: 20100224
  2. RASILEZ [Concomitant]
     Dosage: 1 DOSAGE FORM
     Dates: start: 20100116
  3. ADALAT [Concomitant]
     Dosage: 1 DOSAGE FORM
     Dates: start: 20100116

REACTIONS (1)
  - LOSS OF LIBIDO [None]
